FAERS Safety Report 4945339-6 (Version None)
Quarter: 2006Q1

REPORT INFORMATION
  Report Type: 
  Country: None (occurrence: None)
  Receive Date: 20060315
  Receipt Date: 20060315
  Transmission Date: 20060701
  Serious: Yes (Life-Threatening, Hospitalization)
  Sender: FDA-Public Use
  Company Number: None

PATIENT
  Age: 85 Year
  Sex: Female
  Weight: 51.9 kg

DRUGS (1)
  1. KETEK [Suspect]
     Indication: PNEUMONIA
     Dosage: 800 MG PO DAILY
     Route: 048
     Dates: start: 20060225, end: 20060228

REACTIONS (12)
  - ANURIA [None]
  - BLOOD CREATINE PHOSPHOKINASE MB INCREASED [None]
  - DIZZINESS [None]
  - DYSPNOEA [None]
  - HEART RATE DECREASED [None]
  - HEPATIC FAILURE [None]
  - METABOLIC ACIDOSIS [None]
  - MUSCULAR WEAKNESS [None]
  - NAUSEA [None]
  - NODAL RHYTHM [None]
  - RENAL FAILURE ACUTE [None]
  - TROPONIN INCREASED [None]
